FAERS Safety Report 10757071 (Version 1)
Quarter: 2015Q1

REPORT INFORMATION
  Report Type: Spontaneous
  Country: US (occurrence: US)
  Receive Date: 20150203
  Receipt Date: 20150203
  Transmission Date: 20150721
  Serious: Yes (Other)
  Sender: FDA-Public Use
  Company Number: US-ROCHE-1527307

PATIENT
  Sex: Male

DRUGS (1)
  1. XELODA [Suspect]
     Active Substance: CAPECITABINE
     Indication: GASTRIC CANCER
     Route: 048
     Dates: start: 2014, end: 2014

REACTIONS (6)
  - Hypoaesthesia [Not Recovered/Not Resolved]
  - Ageusia [Not Recovered/Not Resolved]
  - Dysphagia [Unknown]
  - Pain [Recovered/Resolved]
  - Wound infection [Recovered/Resolved]
  - Device dislocation [Recovered/Resolved]
